FAERS Safety Report 13542216 (Version 1)
Quarter: 2017Q2

REPORT INFORMATION
  Report Type: Spontaneous
  Country: US (occurrence: US)
  Receive Date: 20170512
  Receipt Date: 20170512
  Transmission Date: 20170830
  Serious: No
  Sender: FDA-Public Use
  Company Number: US-ROCHE-765501

PATIENT
  Sex: Female
  Weight: 63.6 kg

DRUGS (2)
  1. AVASTIN [Suspect]
     Active Substance: BEVACIZUMAB
     Indication: NEOVASCULAR AGE-RELATED MACULAR DEGENERATION
     Dosage: THE PATIENT RECEIVED ONE INJECTION.
     Route: 050
  2. AVASTIN [Suspect]
     Active Substance: BEVACIZUMAB
     Dosage: THE PATIENT HAD RECEIVED ONE INJECTION.
     Route: 050

REACTIONS (1)
  - Rash macular [Not Recovered/Not Resolved]
